FAERS Safety Report 11989181 (Version 1)
Quarter: 2016Q1

REPORT INFORMATION
  Report Type: Spontaneous
  Country: PT (occurrence: PT)
  Receive Date: 20160202
  Receipt Date: 20160202
  Transmission Date: 20160526
  Serious: Yes (Life-Threatening)
  Sender: FDA-Public Use
  Company Number: PT-TEVA-628058ISR

PATIENT
  Age: 57 Year
  Sex: Female

DRUGS (3)
  1. LEVOTIROXINA SODICA [Concomitant]
  2. HIDROCORTISONA [Concomitant]
  3. DESMOPRESSINA TEVA [Suspect]
     Active Substance: DESMOPRESSIN ACETATE
     Indication: DIABETES INSIPIDUS
     Route: 048
     Dates: start: 201512

REACTIONS (4)
  - Polydipsia [Recovered/Resolved]
  - Product quality issue [Recovered/Resolved]
  - Drug ineffective [Recovered/Resolved]
  - Polyuria [Recovered/Resolved]

NARRATIVE: CASE EVENT DATE: 201512
